FAERS Safety Report 23272826 (Version 1)
Quarter: 2023Q4

REPORT INFORMATION
  Report Type: Spontaneous
  Country: CH (occurrence: CH)
  Receive Date: 20231207
  Receipt Date: 20231207
  Transmission Date: 20240110
  Serious: Yes (Hospitalization, Other)
  Sender: FDA-Public Use
  Company Number: None

PATIENT
  Age: 73 Year
  Sex: Male
  Weight: 46 kg

DRUGS (17)
  1. ENOXAPARIN SODIUM [Suspect]
     Active Substance: ENOXAPARIN SODIUM
     Indication: Atrial thrombosis
     Dosage: UNK
     Route: 058
     Dates: start: 202211, end: 20230308
  2. ENOXAPARIN SODIUM [Suspect]
     Active Substance: ENOXAPARIN SODIUM
     Dosage: UNK
     Route: 058
     Dates: start: 20230416, end: 202305
  3. ENOXAPARIN SODIUM [Suspect]
     Active Substance: ENOXAPARIN SODIUM
     Dosage: DOSAGE HISTORY NOT COMPLETELY CLEAR: 20230906 0.4 ML 2X DAILY S.C. (CAN BE DERIVED FROM ANTI-FACT...
     Route: 058
     Dates: start: 20230829, end: 20231031
  4. ENOXAPARIN SODIUM [Suspect]
     Active Substance: ENOXAPARIN SODIUM
     Dosage: 20231106: 40 ML., 20231107: 80 ML , FROM 20231108: 100 ML PER DAY S.C. (60-0-40)
     Route: 058
     Dates: start: 20231106
  5. METOPROLOL [Concomitant]
     Active Substance: METOPROLOL
     Dosage: 100 MG Q12H
     Route: 048
  6. ALDACTONE [Concomitant]
     Active Substance: SPIRONOLACTONE
     Dosage: 50 MG, Q12H
     Route: 048
  7. ENTRESTO [Concomitant]
     Active Substance: SACUBITRIL\VALSARTAN
     Dosage: 50 MG Q12H
     Route: 048
  8. DAPAGLIFLOZIN [Concomitant]
     Active Substance: DAPAGLIFLOZIN
     Dosage: 10 MG QD
     Route: 048
  9. PREDNISOLONE [Concomitant]
     Active Substance: PREDNISOLONE
     Dosage: 2.5 MG QD
     Route: 048
  10. MAGNESIUM-DIASPORAL [MAGNESIUM CITRATE;MAGNESIUM LEVULINATE] [Concomitant]
     Dosage: 300 MG QD
     Route: 048
  11. ANORO ELLIPTA [Concomitant]
     Active Substance: UMECLIDINIUM BROMIDE\VILANTEROL TRIFENATATE
     Dosage: 55/22 1-0-0-0, QD
  12. METOLAZONE [Concomitant]
     Active Substance: METOLAZONE
     Dosage: 5 MG QD
     Route: 048
  13. FOLIC ACID [Concomitant]
     Active Substance: FOLIC ACID
     Dosage: 5 MG QD
     Route: 048
     Dates: end: 20231031
  14. TORSEMIDE [Concomitant]
     Active Substance: TORSEMIDE
     Dosage: 200 MG 0.5-0.5-0-0
  15. TRAZODONE HYDROCHLORIDE [Concomitant]
     Active Substance: TRAZODONE HYDROCHLORIDE
     Dosage: 0-0-1, 50 MG QD
     Route: 048
  16. CHOLECALCIFEROL [Concomitant]
     Active Substance: CHOLECALCIFEROL
     Dosage: 800 IU QD
     Route: 048
  17. RESOURCE 2.0+FIBRE [Concomitant]
     Dosage: 50 ML Q6H
     Route: 048

REACTIONS (3)
  - Compartment syndrome [Recovering/Resolving]
  - Muscle haemorrhage [Recovering/Resolving]
  - Blood loss anaemia [Recovering/Resolving]

NARRATIVE: CASE EVENT DATE: 20231027
